FAERS Safety Report 7177342-2 (Version None)
Quarter: 2010Q4

REPORT INFORMATION
  Report Type: 
  Country: None (occurrence: None)
  Receive Date: 20101216
  Receipt Date: 20101216
  Transmission Date: 20110411
  Serious: No
  Sender: FDA-Public Use
  Company Number: None

PATIENT
  Sex: Male
  Weight: 81.6475 kg

DRUGS (1)
  1. AMLODIPINE BESYLATE 10 MG GENERIC FOR NORVASC 10 MG [Suspect]
     Indication: BLOOD PRESSURE
     Dosage: 1 TABLET DAY 1 DAY TOOK 1 TABLET ONLY

REACTIONS (3)
  - FALL [None]
  - MUSCLE STRAIN [None]
  - SYNCOPE [None]
